FAERS Safety Report 16266338 (Version 1)
Quarter: 2019Q2

REPORT INFORMATION
  Report Type: Spontaneous
  Country: CN (occurrence: CN)
  Receive Date: 20190502
  Receipt Date: 20190502
  Transmission Date: 20190711
  Serious: Yes (Hospitalization)
  Sender: FDA-Public Use
  Company Number: CN-PFM-2019-04747

PATIENT

DRUGS (3)
  1. VINORELBINE TARTRATE. [Suspect]
     Active Substance: VINORELBINE TARTRATE
     Dosage: 40 MG, QD (1/DAY), D1-3
     Route: 048
     Dates: start: 20190319
  2. VINORELBINE TARTRATE. [Suspect]
     Active Substance: VINORELBINE TARTRATE
     Indication: BREAST CANCER METASTATIC
     Dosage: 40 MG, QD (1/DAY), D1-3
     Route: 048
     Dates: start: 20160717
  3. APATINIB MESYLATE [Suspect]
     Active Substance: APATINIB
     Indication: BREAST CANCER METASTATIC
     Dosage: 0.5 G, QD (1/DAY), D1-8
     Route: 048
     Dates: start: 20160717

REACTIONS (1)
  - Acute hepatic failure [Unknown]

NARRATIVE: CASE EVENT DATE: 201607
